FAERS Safety Report 8368836-2 (Version None)
Quarter: 2012Q2

REPORT INFORMATION
  Report Type: 
  Country: None (occurrence: None)
  Receive Date: 20120518
  Receipt Date: 20120509
  Transmission Date: 20120825
  Serious: No
  Sender: FDA-Public Use
  Company Number: US-BIOGENIDEC-2012BI017013

PATIENT
  Sex: Male

DRUGS (4)
  1. AVONEX [Suspect]
     Indication: MULTIPLE SCLEROSIS
     Route: 030
     Dates: start: 20071001
  2. AMPYRA [Concomitant]
     Indication: GAIT DISTURBANCE
     Dates: start: 20090101, end: 20110901
  3. NAPROXEN (ALEVE) [Concomitant]
     Indication: PREMEDICATION
     Dates: start: 20070101
  4. ARBACLOFEN [Concomitant]
     Indication: MUSCLE SPASTICITY
     Dates: start: 20120201

REACTIONS (4)
  - GAIT DISTURBANCE [None]
  - MUSCLE SPASTICITY [None]
  - FATIGUE [None]
  - INFLUENZA LIKE ILLNESS [None]
